FAERS Safety Report 23198358 (Version 6)
Quarter: 2025Q3

REPORT INFORMATION
  Report Type: Other
  Country: US (occurrence: US)
  Receive Date: 20231117
  Receipt Date: 20250930
  Transmission Date: 20251020
  Serious: No
  Sender: TRAVERE THERAPEUTICS
  Company Number: US-TRAVERE-2023TVT00460

PATIENT
  Age: 29 Year
  Sex: Female

DRUGS (4)
  1. FILSPARI [Suspect]
     Active Substance: SPARSENTAN
     Indication: IgA nephropathy
     Dosage: 200 MG
     Route: 048
  2. FILSPARI [Suspect]
     Active Substance: SPARSENTAN
     Dosage: 400 MG
     Route: 048
  3. FILSPARI [Suspect]
     Active Substance: SPARSENTAN
     Dosage: TOOK 2 TABLETS OF 400MG
     Route: 048
     Dates: start: 20241012, end: 20241014
  4. FILSPARI [Suspect]
     Active Substance: SPARSENTAN
     Route: 048
     Dates: start: 20241015

REACTIONS (9)
  - Nausea [Unknown]
  - Dizziness postural [Unknown]
  - Peripheral swelling [Recovered/Resolved]
  - Thirst [Unknown]
  - Dehydration [Unknown]
  - Off label use [Unknown]
  - Blood creatinine abnormal [Unknown]
  - Proteinuria [Unknown]
  - Blood creatinine increased [Unknown]

NARRATIVE: CASE EVENT DATE: 20240118
